FAERS Safety Report 6518248-9 (Version None)
Quarter: 2009Q4

REPORT INFORMATION
  Report Type: 
  Country: None (occurrence: None)
  Receive Date: 20091223
  Receipt Date: 20091223
  Transmission Date: 20100525
  Serious: Yes (Death)
  Sender: FDA-Public Use
  Company Number: None

PATIENT
  Sex: Male
  Weight: 84.369 kg

DRUGS (2)
  1. AZOPT [Suspect]
     Indication: GLAUCOMA
     Dosage: BOTH EYES 3 X 1 DROP
     Dates: start: 20091202
  2. TRAVATAN [Suspect]
     Indication: GLAUCOMA
     Dosage: BOTH EYES 1 DROP NITE
     Dates: start: 20091202

REACTIONS (5)
  - EYE IRRITATION [None]
  - EYE PRURITUS [None]
  - EYELID OEDEMA [None]
  - SWELLING FACE [None]
  - VISUAL IMPAIRMENT [None]
